FAERS Safety Report 6061889-6 (Version None)
Quarter: 2009Q1

REPORT INFORMATION
  Report Type: 
  Country: None (occurrence: None)
  Receive Date: 20090202
  Receipt Date: 20090122
  Transmission Date: 20090719
  Serious: Yes (Other)
  Sender: FDA-Public Use
  Company Number: PHHY2009GB02593

PATIENT

DRUGS (1)
  1. AREDIA [Suspect]
     Dosage: QMO

REACTIONS (1)
  - HIP ARTHROPLASTY [None]
